FAERS Safety Report 13791336 (Version 1)
Quarter: 2017Q3

REPORT INFORMATION
  Report Type: Report from Study
  Country: CN (occurrence: CN)
  Receive Date: 20170725
  Receipt Date: 20170725
  Transmission Date: 20171127
  Serious: Yes (Other)
  Sender: FDA-Public Use
  Company Number: CN-MYLANLABS-2017M1044040

PATIENT

DRUGS (4)
  1. TEGAFUR [Suspect]
     Active Substance: TEGAFUR
     Indication: COLON CANCER
     Route: 065
  2. OXALIPLATIN. [Suspect]
     Active Substance: OXALIPLATIN
     Indication: COLON CANCER
     Route: 065
  3. FLUOROURACIL. [Suspect]
     Active Substance: FLUOROURACIL
     Indication: COLON CANCER
     Route: 065
  4. CISPLATIN. [Suspect]
     Active Substance: CISPLATIN
     Indication: COLON CANCER
     Route: 065

REACTIONS (2)
  - Myelodysplastic syndrome [Not Recovered/Not Resolved]
  - Metastasis [Not Recovered/Not Resolved]
